FAERS Safety Report 4447236-1 (Version None)
Quarter: 2004Q3

REPORT INFORMATION
  Report Type: 
  Country: None (occurrence: None)
  Receive Date: 20040908
  Receipt Date: 20040908
  Transmission Date: 20050211
  Serious: Yes (Hospitalization)
  Sender: FDA-Public Use
  Company Number: None

PATIENT
  Age: 76 Year
  Sex: Male

DRUGS (1)
  1. METOPRLOL [Suspect]
     Indication: HYPERTENSION
     Dosage: 50 MG
     Dates: start: 20021001

REACTIONS (2)
  - BRADYCARDIA [None]
  - DIZZINESS [None]
